FAERS Safety Report 6530102-5 (Version None)
Quarter: 2010Q1

REPORT INFORMATION
  Report Type: 
  Country: None (occurrence: None)
  Receive Date: 20100107
  Receipt Date: 20091230
  Transmission Date: 20100710
  Serious: Yes (Death, Hospitalization)
  Sender: FDA-Public Use
  Company Number: US-BAXTER-2009BH017348

PATIENT
  Sex: Female

DRUGS (2)
  1. HEPARIN SODIUM INJECTION [Suspect]
     Indication: HEART VALVE REPLACEMENT
     Route: 042
     Dates: start: 20071101
  2. HEPARIN SODIUM INJECTION [Suspect]
     Route: 042
     Dates: end: 20090101

REACTIONS (8)
  - EMOTIONAL DISTRESS [None]
  - GENERAL PHYSICAL HEALTH DETERIORATION [None]
  - HOSPITALISATION [None]
  - MALAISE [None]
  - MENTAL IMPAIRMENT [None]
  - PLATELET COUNT DECREASED [None]
  - PYREXIA [None]
  - RENAL FAILURE [None]
